FAERS Safety Report 5344966-4 (Version None)
Quarter: 2007Q2

REPORT INFORMATION
  Report Type: 
  Country: None (occurrence: None)
  Receive Date: 20070416
  Receipt Date: 20061231
  Transmission Date: 20071010
  Serious: No
  Sender: FDA-Public Use
  Company Number: 2007SP000023

PATIENT
  Age: 42 Year
  Sex: Female
  Weight: 60.3284 kg

DRUGS (11)
  1. LUNESTA [Suspect]
     Indication: INSOMNIA
     Dosage: 3 MG; PRN; ORAL
     Route: 048
     Dates: start: 20061224, end: 20061231
  2. ASPIRIN [Concomitant]
  3. PLAVIX [Concomitant]
  4. SYNTHROID [Concomitant]
  5. AMLODIPINE [Concomitant]
  6. IMDUR [Concomitant]
  7. ALTACE [Concomitant]
  8. ZOLOFT [Concomitant]
  9. NITROGLYCERIN [Concomitant]
  10. NITRO-DUR [Concomitant]
  11. AMBIEN [Concomitant]

REACTIONS (1)
  - DYSGEUSIA [None]
